FAERS Safety Report 4536110-8 (Version None)
Quarter: 2004Q4

REPORT INFORMATION
  Report Type: 
  Country: None (occurrence: None)
  Receive Date: 20041222
  Receipt Date: 20041222
  Transmission Date: 20050328
  Serious: No
  Sender: FDA-Public Use
  Company Number: None

PATIENT
  Age: 44 Year
  Sex: Male
  Weight: 100 kg

DRUGS (7)
  1. ACYCLOVIR [Suspect]
     Indication: MENINGITIS VIRAL
     Dosage: 1.5 G IV Q 8 L
     Route: 042
     Dates: start: 20041101, end: 20041103
  2. ROCEPHIN [Concomitant]
  3. DECADRON [Concomitant]
  4. DILTIAZEM [Concomitant]
  5. PEPCID [Concomitant]
  6. MORPHINE [Concomitant]
  7. PROPOFOL [Concomitant]

REACTIONS (4)
  - CRYSTAL URINE PRESENT [None]
  - NEPHROPATHY TOXIC [None]
  - TREATMENT NONCOMPLIANCE [None]
  - URINE ANALYSIS ABNORMAL [None]
